FAERS Safety Report 5925625-3 (Version None)
Quarter: 2008Q3

REPORT INFORMATION
  Report Type: 
  Country: None (occurrence: None)
  Receive Date: 20080909
  Receipt Date: 20080204
  Transmission Date: 20090109
  Serious: Yes (Death)
  Sender: FDA-Public Use
  Company Number: 163-20785-08010016

PATIENT
  Age: 69 Year
  Sex: Female

DRUGS (3)
  1. THALOMID [Suspect]
     Indication: MULTIPLE MYELOMA
     Dosage: 1 IN 1 D, ORAL; 3 IN 1 D, ORAL; 2 IN 1 D, ORAL
     Route: 048
     Dates: start: 20070126, end: 20070201
  2. THALOMID [Suspect]
     Indication: MULTIPLE MYELOMA
     Dosage: 1 IN 1 D, ORAL; 3 IN 1 D, ORAL; 2 IN 1 D, ORAL
     Route: 048
     Dates: start: 20070223, end: 20070301
  3. THALOMID [Suspect]
     Indication: MULTIPLE MYELOMA
     Dosage: 1 IN 1 D, ORAL; 3 IN 1 D, ORAL; 2 IN 1 D, ORAL
     Route: 048
     Dates: start: 20070328, end: 20071201

REACTIONS (1)
  - MULTIPLE MYELOMA [None]
